FAERS Safety Report 12459430 (Version 1)
Quarter: 2016Q2

REPORT INFORMATION
  Report Type: Spontaneous
  Country: NO (occurrence: NO)
  Receive Date: 20160613
  Receipt Date: 20160613
  Transmission Date: 20160815
  Serious: Yes (Other)
  Sender: FDA-Public Use
  Company Number: NO-GUERBET LLC-1053722

PATIENT
  Age: 21 Year
  Sex: Male

DRUGS (1)
  1. DOTAREM [Suspect]
     Active Substance: GADOTERATE MEGLUMINE
     Indication: NUCLEAR MAGNETIC RESONANCE IMAGING
     Route: 051
     Dates: start: 20160526, end: 20160526

REACTIONS (7)
  - Nausea [Unknown]
  - Dyspnoea [Unknown]
  - Urticaria [Unknown]
  - Eye swelling [Unknown]
  - Dizziness [Unknown]
  - Contrast media reaction [Unknown]
  - Erythema [Unknown]

NARRATIVE: CASE EVENT DATE: 20160526
